FAERS Safety Report 5714364-X (Version None)
Quarter: 2008Q2

REPORT INFORMATION
  Report Type: 
  Country: None (occurrence: None)
  Receive Date: 20080423
  Receipt Date: 20080411
  Transmission Date: 20081010
  Serious: Yes (Other)
  Sender: FDA-Public Use
  Company Number: GB-JNJFOC-20080403778

PATIENT
  Age: 68 Year
  Sex: Male

DRUGS (1)
  1. IONSYS [Suspect]
     Indication: DRUG USE FOR UNKNOWN INDICATION
     Route: 044

REACTIONS (4)
  - APPLICATION SITE ERYTHEMA [None]
  - APPLICATION SITE IRRITATION [None]
  - APPLICATION SITE RASH [None]
  - APPLICATION SITE VESICLES [None]
